FAERS Safety Report 16542730 (Version 1)
Quarter: 2019Q3

REPORT INFORMATION
  Report Type: Spontaneous
  Country: JP (occurrence: JP)
  Receive Date: 20190709
  Receipt Date: 20190709
  Transmission Date: 20191004
  Serious: Yes (Other)
  Sender: FDA-Public Use
  Company Number: JP-TEVA-2019-JP-1074086

PATIENT
  Age: 81 Year
  Sex: Male

DRUGS (4)
  1. FILGRASTIM BS INJ. 150MCG SYRINGE [Suspect]
     Active Substance: FILGRASTIM
     Indication: NEUTROPHIL COUNT DECREASED
     Route: 065
  2. LASTET INJ. 100MG/5ML [Concomitant]
     Active Substance: ETOPOSIDE
     Route: 065
  3. CARBOPLATIN. [Concomitant]
     Active Substance: CARBOPLATIN
     Route: 065
  4. PEGFILGRASTIM [Suspect]
     Active Substance: PEGFILGRASTIM
     Indication: PROPHYLAXIS
     Route: 065

REACTIONS (1)
  - Aortic wall hypertrophy [Unknown]
